FAERS Safety Report 10160315 (Version 1)
Quarter: 2014Q2

REPORT INFORMATION
  Report Type: Spontaneous
  Country: US (occurrence: US)
  Receive Date: 20140508
  Receipt Date: 20140508
  Transmission Date: 20141212
  Serious: Yes (Death, Other)
  Sender: FDA-Public Use
  Company Number: US-ROXANE LABORATORIES, INC.-2014-RO-00708RO

PATIENT
  Age: 29 Year
  Sex: Male

DRUGS (5)
  1. CODEINE SULFATE [Suspect]
     Indication: PAIN
     Dosage: 60 MG
     Route: 048
  2. PARACETAMOL [Suspect]
     Indication: PAIN
     Dosage: 650 MG
     Route: 048
  3. MORPHINE [Suspect]
     Indication: PAIN
     Route: 042
  4. HYDROMORPHONE [Suspect]
     Indication: PAIN
     Dosage: 4 MG
     Route: 042
  5. METOCLOPRAMIDE [Suspect]
     Indication: PAIN
     Dosage: 10 MG
     Route: 042

REACTIONS (2)
  - Sudden death [Fatal]
  - Urinary incontinence [Unknown]
